FAERS Safety Report 20579149 (Version 1)
Quarter: 2022Q1

REPORT INFORMATION
  Report Type: Spontaneous
  Country: AU (occurrence: AU)
  Receive Date: 20220310
  Receipt Date: 20220310
  Transmission Date: 20220424
  Serious: Yes (Other)
  Sender: FDA-Public Use
  Company Number: AU-JNJFOC-20220308104

PATIENT
  Age: 51 Year
  Sex: Male

DRUGS (6)
  1. IBRUTINIB [Suspect]
     Active Substance: IBRUTINIB
     Indication: Chronic graft versus host disease
     Route: 048
  2. CYCLOSPORINE [Suspect]
     Active Substance: CYCLOSPORINE
     Indication: Chronic graft versus host disease
     Route: 065
  3. MYCOPHENOLATE MOFETIL [Suspect]
     Active Substance: MYCOPHENOLATE MOFETIL
     Indication: Chronic graft versus host disease
     Route: 065
  4. PREDNISONE [Suspect]
     Active Substance: PREDNISONE
     Indication: Chronic graft versus host disease
     Route: 065
  5. FLUDARABINE [Suspect]
     Active Substance: FLUDARABINE PHOSPHATE
     Indication: Product used for unknown indication
     Route: 065
  6. RUXOLITINIB [Suspect]
     Active Substance: RUXOLITINIB
     Indication: Chronic graft versus host disease
     Route: 065

REACTIONS (20)
  - Chronic kidney disease [Unknown]
  - Chronic myeloid leukaemia [Unknown]
  - Scleroderma [Unknown]
  - Acute graft versus host disease in intestine [Unknown]
  - Acute graft versus host disease in liver [Unknown]
  - Acute graft versus host disease in skin [Unknown]
  - Acute kidney injury [Unknown]
  - Atrial fibrillation [Unknown]
  - Chronic graft versus host disease in skin [Unknown]
  - Cystitis haemorrhagic [Unknown]
  - Pneumonia fungal [Unknown]
  - Cytomegalovirus infection reactivation [Recovered/Resolved]
  - Therapy partial responder [Unknown]
  - Post herpetic neuralgia [Unknown]
  - Skin ulcer [Unknown]
  - Depression [Unknown]
  - Joint range of motion decreased [Unknown]
  - Obesity [Unknown]
  - Herpes simplex [Unknown]
  - Hypertension [Unknown]

NARRATIVE: CASE EVENT DATE: 20181105
